FAERS Safety Report 25332333 (Version 1)
Quarter: 2025Q2

REPORT INFORMATION
  Report Type: Spontaneous
  Country: JP (occurrence: JP)
  Receive Date: 20250519
  Receipt Date: 20250519
  Transmission Date: 20250716
  Serious: Yes (Other)
  Sender: ALEXION PHARMACEUTICALS
  Company Number: JP-ASTRAZENECA-202505GLO008774JP

PATIENT
  Age: 51 Year

DRUGS (2)
  1. ANIFROLUMAB [Suspect]
     Active Substance: ANIFROLUMAB
     Route: 065
  2. MYCOPHENOLATE MOFETIL [Concomitant]
     Active Substance: MYCOPHENOLATE MOFETIL
     Indication: Systemic lupus erythematosus
     Route: 065

REACTIONS (1)
  - Diffuse large B-cell lymphoma [Recovering/Resolving]
